FAERS Safety Report 10202575 (Version 1)
Quarter: 2014Q2

REPORT INFORMATION
  Report Type: Spontaneous
  Country: GB (occurrence: GB)
  Receive Date: 20140528
  Receipt Date: 20140528
  Transmission Date: 20141212
  Serious: Yes (Hospitalization)
  Sender: FDA-Public Use
  Company Number: GB-TEVA-482617ISR

PATIENT
  Sex: Male

DRUGS (5)
  1. LOSARTAN [Suspect]
     Indication: HYPERTENSION
     Route: 048
     Dates: start: 20140319, end: 20140412
  2. DIGOXIN [Concomitant]
     Dosage: LONG TERM
  3. PARACETAMOL [Concomitant]
     Dosage: LONG TERM
  4. BISOPROLOL [Concomitant]
     Dosage: LONG TERM
  5. WARFARIN [Concomitant]
     Dosage: LONG TERM

REACTIONS (3)
  - Rash [Recovering/Resolving]
  - Lip swelling [Recovering/Resolving]
  - Wheezing [Recovering/Resolving]
